FAERS Safety Report 5605913-0 (Version None)
Quarter: 2008Q1

REPORT INFORMATION
  Report Type: 
  Country: None (occurrence: None)
  Receive Date: 20080129
  Receipt Date: 20080117
  Transmission Date: 20080703
  Serious: Yes (Other)
  Sender: FDA-Public Use
  Company Number: US-BAYER-200810290BCC

PATIENT
  Age: 76 Year
  Sex: Male
  Weight: 73 kg

DRUGS (2)
  1. ALKA SELTZER PLUS NIGHTTIME EFFERVESCENT TABLETS [Suspect]
     Indication: NASOPHARYNGITIS
     Route: 048
     Dates: start: 20080115
  2. ANTIHYPERTENSIVE [Concomitant]
     Indication: HYPERTENSION

REACTIONS (9)
  - BLOOD PRESSURE INCREASED [None]
  - CONVULSION [None]
  - COUGH [None]
  - GRIP STRENGTH DECREASED [None]
  - MUSCULOSKELETAL CHEST PAIN [None]
  - NEUROLOGICAL SYMPTOM [None]
  - PARAESTHESIA [None]
  - PYREXIA [None]
  - TREMOR [None]
